FAERS Safety Report 10331430 (Version 1)
Quarter: 2014Q3

REPORT INFORMATION
  Report Type: Spontaneous
  Country: US (occurrence: US)
  Receive Date: 20140722
  Receipt Date: 20140722
  Transmission Date: 20150326
  Serious: No
  Sender: FDA-Public Use
  Company Number: US-PFIZER INC-2014200505

PATIENT
  Age: 27 Year
  Sex: Male
  Weight: 104.31 kg

DRUGS (4)
  1. LYRICA [Concomitant]
     Active Substance: PREGABALIN
     Indication: SPINAL CORD INJURY
     Dosage: 150 MG, 3X/DAY
     Route: 048
     Dates: start: 201406, end: 2014
  2. GABAPENTIN. [Suspect]
     Active Substance: GABAPENTIN
     Indication: SPINAL CORD INJURY
     Dosage: 800 MG, UNK
     Dates: start: 201407
  3. SOMA [Concomitant]
     Active Substance: CARISOPRODOL
     Dosage: 350 MG, AS NEEDED
  4. SOMA [Concomitant]
     Active Substance: CARISOPRODOL
     Dosage: 350 MG, 4X/DAY

REACTIONS (1)
  - Drug ineffective [Unknown]

NARRATIVE: CASE EVENT DATE: 201407
